FAERS Safety Report 7953163-5 (Version None)
Quarter: 2011Q4

REPORT INFORMATION
  Report Type: 
  Country: None (occurrence: None)
  Receive Date: 20111201
  Receipt Date: 20111122
  Transmission Date: 20120403
  Serious: Yes (Hospitalization, Other)
  Sender: FDA-Public Use
  Company Number: US-ASTRAZENECA-2011SE54721

PATIENT
  Age: 71 Year
  Sex: Female

DRUGS (3)
  1. TOPROL-XL [Suspect]
     Route: 048
  2. SYMBICORT [Suspect]
     Route: 055
  3. LYRICA [Suspect]
     Route: 065

REACTIONS (4)
  - FALL [None]
  - LOWER LIMB FRACTURE [None]
  - GRIP STRENGTH DECREASED [None]
  - ANKLE FRACTURE [None]
